FAERS Safety Report 24642978 (Version 1)
Quarter: 2024Q4

REPORT INFORMATION
  Report Type: Spontaneous
  Country: CA (occurrence: CA)
  Receive Date: 20241120
  Receipt Date: 20241120
  Transmission Date: 20250115
  Serious: Yes (Other)
  Sender: PFIZER
  Company Number: CA-PFIZER INC-202200591310

PATIENT
  Age: 38 Year
  Sex: Male
  Weight: 65 kg

DRUGS (16)
  1. RUXIENCE [Suspect]
     Active Substance: RITUXIMAB-PVVR
     Indication: Granulomatosis with polyangiitis
     Dosage: 1000 MG, DAY 1 AND 15
     Route: 042
     Dates: start: 20220610
  2. RUXIENCE [Suspect]
     Active Substance: RITUXIMAB-PVVR
     Dosage: 1000 MG, DAY 1 AND 15
     Route: 042
     Dates: start: 20220624
  3. RUXIENCE [Suspect]
     Active Substance: RITUXIMAB-PVVR
     Dosage: 1000 MG, EVERY 6 MONTH (SINGLE DOSE)
     Route: 042
     Dates: start: 20221213, end: 20221213
  4. RUXIENCE [Suspect]
     Active Substance: RITUXIMAB-PVVR
     Dosage: 1000 MG, EVERY 4 MONTHS (RECEIVED FIRST DOSE OF RUXIENCE AT AN OFF LABEL REGIMEN)
     Route: 042
     Dates: start: 20230424
  5. RUXIENCE [Suspect]
     Active Substance: RITUXIMAB-PVVR
     Dosage: 1000 MG, EVERY 4 MONTHS
     Route: 042
     Dates: start: 20240724, end: 20240724
  6. OMNARIS [Concomitant]
     Active Substance: CICLESONIDE
     Dosage: 100 UG, DAILY
     Route: 045
  7. PANTOPRAZOLE [Concomitant]
     Active Substance: PANTOPRAZOLE
     Dosage: UNK
  8. PREDNISONE [Concomitant]
     Active Substance: PREDNISONE
     Dosage: 60 MG, DAILY
     Route: 048
     Dates: start: 202209, end: 202209
  9. PREDNISONE [Concomitant]
     Active Substance: PREDNISONE
     Dosage: 1 G
     Route: 048
     Dates: start: 202212
  10. PREDNISONE [Concomitant]
     Active Substance: PREDNISONE
     Dosage: 20 MG, DAILY, (5 TABLETS) UNTIL REASSESSMENT
     Route: 048
  11. PREDNISONE [Concomitant]
     Active Substance: PREDNISONE
     Dosage: 15 MG, DAILY
     Route: 048
  12. SEPTRA [Concomitant]
     Active Substance: SULFAMETHOXAZOLE\TRIMETHOPRIM
     Dosage: EVERY MON, WED, FRI, 1 TAB (SEPTRA DS) 800-160 MG PER TABLET
  13. SULFAMETHOXAZOLE AND TRIMETHOPRIM [Concomitant]
     Active Substance: SULFAMETHOXAZOLE\TRIMETHOPRIM
     Dosage: 100 UG, DAILY
  14. CHOLECALCIFEROL [Concomitant]
     Active Substance: CHOLECALCIFEROL
     Dosage: 1000 IU, DAILY
  15. AVACOPAN [Concomitant]
     Active Substance: AVACOPAN
     Dosage: 30 MG, 2X/DAY
     Route: 048
  16. TAVNEOS [Concomitant]
     Active Substance: AVACOPAN
     Dosage: UNK

REACTIONS (7)
  - Interstitial lung disease [Unknown]
  - Drug ineffective [Unknown]
  - Feeling hot [Recovered/Resolved]
  - Weight increased [Unknown]
  - Asthma [Recovering/Resolving]
  - Condition aggravated [Unknown]
  - Off label use [Unknown]

NARRATIVE: CASE EVENT DATE: 20220101
